FAERS Safety Report 17037158 (Version 1)
Quarter: 2019Q4

REPORT INFORMATION
  Report Type: Spontaneous
  Country: US (occurrence: US)
  Receive Date: 20191115
  Receipt Date: 20191115
  Transmission Date: 20200122
  Serious: No
  Sender: FDA-Public Use
  Company Number: US-NOVOPROD-683779

PATIENT
  Age: 25 Year
  Sex: Male

DRUGS (1)
  1. FIASP [Suspect]
     Active Substance: INSULIN ASPART
     Indication: TYPE 1 DIABETES MELLITUS
     Dosage: SLIDING SCALE VIA PUMP
     Route: 058
     Dates: start: 20190828

REACTIONS (4)
  - Liquid product physical issue [Unknown]
  - Wrong technique in product usage process [Unknown]
  - Blood glucose fluctuation [Recovering/Resolving]
  - Infusion site infection [Unknown]

NARRATIVE: CASE EVENT DATE: 201908
